FAERS Safety Report 4675693-4 (Version None)
Quarter: 2005Q2

REPORT INFORMATION
  Report Type: 
  Country: None (occurrence: None)
  Receive Date: 20050527
  Receipt Date: 20050201
  Transmission Date: 20051028
  Serious: No
  Sender: FDA-Public Use
  Company Number: US-BRISTOL-MYERS SQUIBB COMPANY-12844833

PATIENT
  Age: 78 Year
  Sex: Male
  Weight: 80 kg

DRUGS (3)
  1. ERBITUX [Suspect]
     Indication: NEOPLASM MALIGNANT
     Dosage: INITIAL DOSE 840 MG ON 19-JAN-05/THIRD DOSE 500 MG 01-FEB-2005.
     Route: 042
     Dates: start: 20050126
  2. BENADRYL [Concomitant]
     Indication: PREMEDICATION
     Dates: start: 20050126
  3. ZANTAC [Concomitant]
     Indication: PREMEDICATION
     Dates: start: 20050126

REACTIONS (1)
  - RASH [None]
